FAERS Safety Report 14030923 (Version 1)
Quarter: 2017Q4

REPORT INFORMATION
  Report Type: Spontaneous
  Country: GB (occurrence: GB)
  Receive Date: 20171002
  Receipt Date: 20171002
  Transmission Date: 20180321
  Serious: Yes (Hospitalization)
  Sender: FDA-Public Use
  Company Number: GB-TEVA-809292ACC

PATIENT
  Age: 65 Year
  Sex: Female

DRUGS (1)
  1. DEXAMETHASONE. [Suspect]
     Active Substance: DEXAMETHASONE
     Dosage: 10 MILLIGRAM DAILY;
     Route: 048
     Dates: start: 20170731

REACTIONS (3)
  - Seizure [Unknown]
  - Drug prescribing error [Unknown]
  - Accidental overdose [Unknown]
